FAERS Safety Report 9690898 (Version 1)
Quarter: 2013Q4

REPORT INFORMATION
  Report Type: Spontaneous
  Country: GB (occurrence: GB)
  Receive Date: 20131115
  Receipt Date: 20131115
  Transmission Date: 20140711
  Serious: Yes (Other)
  Sender: FDA-Public Use
  Company Number: GB-WATSON-2013-21076

PATIENT
  Age: 40 Year
  Sex: Female

DRUGS (4)
  1. LEVETIRACETAM (UNKNOWN) [Suspect]
     Indication: PRODUCT USED FOR UNKNOWN INDICATION
     Dosage: TOTAL DAILY DOSE: 2000
     Route: 065
  2. LACOSAMIDE [Suspect]
     Indication: CONVULSION
     Dosage: TOTAL DAILY DOSE: 300
     Route: 065
  3. LAMOTRIGINE [Concomitant]
     Indication: PRODUCT USED FOR UNKNOWN INDICATION
     Dosage: TOTAL DAILY DOSE: 200
     Route: 065
  4. TOPIRAMATE [Concomitant]
     Indication: PRODUCT USED FOR UNKNOWN INDICATION
     Dosage: TOTAL DAILY DOSE: 325
     Route: 065

REACTIONS (2)
  - Convulsion [Unknown]
  - Drug ineffective [Unknown]
